FAERS Safety Report 15487695 (Version 3)
Quarter: 2022Q1

REPORT INFORMATION
  Report Type: Report from Study
  Country: FR (occurrence: FR)
  Receive Date: 20181011
  Receipt Date: 20220130
  Transmission Date: 20220424
  Serious: Yes (Other)
  Sender: FDA-Public Use
  Company Number: FR-JAZZ-2017-FR-015744

PATIENT

DRUGS (9)
  1. DEFITELIO [Suspect]
     Active Substance: DEFIBROTIDE SODIUM
     Indication: Prophylaxis
     Dosage: 25 MG/KG, QD
     Route: 042
     Dates: start: 20150903, end: 20150930
  2. CELLCEPT [Concomitant]
     Active Substance: MYCOPHENOLATE MOFETIL
     Indication: Prophylaxis
     Dosage: 2 G/DAY
     Route: 042
     Dates: start: 20150913, end: 20150923
  3. CELLCEPT [Concomitant]
     Active Substance: MYCOPHENOLATE MOFETIL
     Dosage: 2 G/DAY
     Route: 048
     Dates: start: 20150923, end: 20151006
  4. CELLCEPT [Concomitant]
     Active Substance: MYCOPHENOLATE MOFETIL
     Indication: Prophylaxis
     Dosage: 2 GRAM, QD
     Route: 048
     Dates: start: 20150929, end: 20151006
  5. URSODIOL [Concomitant]
     Active Substance: URSODIOL
     Indication: Prophylaxis
     Dosage: 1 G/DAY
     Route: 048
     Dates: start: 20150901, end: 20151006
  6. PREDNISONE [Concomitant]
     Active Substance: PREDNISONE
     Indication: Prophylaxis
     Dosage: 40 MG, DAY
     Route: 048
     Dates: start: 20150914, end: 20150916
  7. CYCLOSPORINE [Concomitant]
     Active Substance: CYCLOSPORINE
     Indication: Prophylaxis
     Dosage: 50 MG/DAY
     Route: 042
     Dates: start: 20150913, end: 20150915
  8. FLUCONAZOLE [Concomitant]
     Active Substance: FLUCONAZOLE
     Indication: Prophylaxis
     Dosage: 400 MG/DAY
     Route: 042
     Dates: start: 20150903, end: 20150923
  9. VALACYCLOVIR HYDROCHLORIDE [Concomitant]
     Active Substance: VALACYCLOVIR HYDROCHLORIDE
     Indication: Prophylaxis
     Dosage: 500 MG/DAY
     Route: 048
     Dates: start: 20150902, end: 20151006

REACTIONS (2)
  - Haemorrhoidal haemorrhage [Recovered/Resolved]
  - Off label use [Unknown]

NARRATIVE: CASE EVENT DATE: 20150914
